FAERS Safety Report 16356955 (Version 4)
Quarter: 2020Q1

REPORT INFORMATION
  Report Type: Spontaneous
  Country: JP (occurrence: JP)
  Receive Date: 20190527
  Receipt Date: 20200122
  Transmission Date: 20200409
  Serious: Yes (Death, Hospitalization, Other)
  Sender: FDA-Public Use
  Company Number: JP-BRISTOL-MYERS SQUIBB COMPANY-BMS-2018-120065

PATIENT
  Age: 72 Year
  Sex: Male
  Weight: 71 kg

DRUGS (2)
  1. YERVOY [Suspect]
     Active Substance: IPILIMUMAB
     Indication: RENAL CELL CARCINOMA
     Dosage: 85 MILLIGRAM
     Route: 041
     Dates: start: 20181030, end: 20181212
  2. OPDIVO [Suspect]
     Active Substance: NIVOLUMAB
     Indication: RENAL CELL CARCINOMA
     Dosage: 240 MILLIGRAM
     Route: 041
     Dates: start: 20181030, end: 20181212

REACTIONS (4)
  - Gastrointestinal perforation [Fatal]
  - Hypopituitarism [Not Recovered/Not Resolved]
  - Diarrhoea [Recovered/Resolved]
  - Enterocolitis [Fatal]

NARRATIVE: CASE EVENT DATE: 20181212
